FAERS Safety Report 20994407 (Version 1)
Quarter: 2022Q2

REPORT INFORMATION
  Report Type: Spontaneous
  Country: FR (occurrence: FR)
  Receive Date: 20220622
  Receipt Date: 20220622
  Transmission Date: 20220720
  Serious: Yes (Death)
  Sender: FDA-Public Use
  Company Number: None

PATIENT
  Age: 69 Year
  Sex: Female

DRUGS (3)
  1. CLOMIPRAMINE [Suspect]
     Active Substance: CLOMIPRAMINE
     Indication: Mixed anxiety and depressive disorder
     Dosage: 125 MILLIGRAM, QD
     Route: 048
     Dates: start: 20220506, end: 20220515
  2. TRIMEPRAZINE [Suspect]
     Active Substance: TRIMEPRAZINE
     Indication: Product used for unknown indication
     Dosage: 20 MILLIGRAM, QD
     Route: 048
     Dates: start: 20220428, end: 20220515
  3. TRANXENE [Suspect]
     Active Substance: CLORAZEPATE DIPOTASSIUM
     Indication: Agitation
     Dosage: 1 DOSAGE FORM
     Route: 030
     Dates: start: 20220514, end: 20220514

REACTIONS (7)
  - Hyperthermia [Fatal]
  - Hypernatraemia [Fatal]
  - Hyperleukocytosis [Fatal]
  - Agitation [Fatal]
  - Hypertonia [Fatal]
  - Cardio-respiratory arrest [Fatal]
  - Tachycardia [Fatal]

NARRATIVE: CASE EVENT DATE: 20220514
